FAERS Safety Report 20707506 (Version 1)
Quarter: 2022Q2

REPORT INFORMATION
  Report Type: Spontaneous
  Country: GB (occurrence: GB)
  Receive Date: 20220413
  Receipt Date: 20220413
  Transmission Date: 20220720
  Serious: Yes (Other)
  Sender: FDA-Public Use
  Company Number: GB-ANIPHARMA-2022-UK-000087

PATIENT
  Age: 49 Year
  Sex: 0

DRUGS (4)
  1. ANASTROZOLE [Suspect]
     Active Substance: ANASTROZOLE
     Indication: Breast cancer
     Route: 065
     Dates: start: 201812
  2. FULVESTRANT [Suspect]
     Active Substance: FULVESTRANT
     Route: 065
     Dates: start: 201910, end: 202105
  3. ABEMACICLIB [Suspect]
     Active Substance: ABEMACICLIB
     Route: 065
     Dates: start: 201910, end: 202105
  4. EVEROLIMUS [Suspect]
     Active Substance: EVEROLIMUS
     Route: 065

REACTIONS (14)
  - Diabetes mellitus [Unknown]
  - Pelvic pain [Unknown]
  - Pain in extremity [Unknown]
  - Vaginal discharge [Unknown]
  - Oral pain [Unknown]
  - Glossodynia [Unknown]
  - Fatigue [Unknown]
  - Metastases to bone [Unknown]
  - Metastases to breast [Unknown]
  - Metastases to liver [Unknown]
  - Malignant neoplasm progression [Unknown]
  - Arthralgia [Unknown]
  - Cough [Unknown]
  - Dry skin [Unknown]

NARRATIVE: CASE EVENT DATE: 20210801
